FAERS Safety Report 6824290-0 (Version None)
Quarter: 2010Q3

REPORT INFORMATION
  Report Type: 
  Country: None (occurrence: None)
  Receive Date: 20100708
  Receipt Date: 20061017
  Transmission Date: 20110219
  Serious: No
  Sender: FDA-Public Use
  Company Number: US-PFIZER INC-2006128517

PATIENT
  Sex: Female
  Weight: 49.9 kg

DRUGS (11)
  1. CHANTIX [Suspect]
     Indication: SMOKING CESSATION THERAPY
     Route: 048
     Dates: start: 20061003
  2. ENALAPRIL MALEATE [Concomitant]
  3. PLAVIX [Concomitant]
  4. DARVOCET [Concomitant]
  5. MULTIPLE VITAMINS [Concomitant]
  6. POTASSIUM CHLORIDE [Concomitant]
  7. MAGNESIUM [Concomitant]
  8. VITAMIN E [Concomitant]
  9. FLAXSEED OIL [Concomitant]
  10. FISH OIL [Concomitant]
  11. CRESTOR [Concomitant]

REACTIONS (3)
  - MALAISE [None]
  - SLEEP DISORDER [None]
  - VOMITING [None]
